FAERS Safety Report 14637494 (Version 2)
Quarter: 2018Q1

REPORT INFORMATION
  Report Type: Spontaneous
  Country: US (occurrence: US)
  Receive Date: 20180314
  Receipt Date: 20180314
  Transmission Date: 20180509
  Serious: No
  Sender: FDA-Public Use
  Company Number: US-ALLERGAN-1713497US

PATIENT
  Age: 60 Year
  Sex: Female

DRUGS (1)
  1. HYDROCODONE BITARTRATE;ACETAMINOPHEN UNK [Suspect]
     Active Substance: ACETAMINOPHEN\HYDROCODONE BITARTRATE
     Indication: FRACTURE
     Dosage: 5 MG/324 MG, UNK
     Route: 065
     Dates: start: 2015, end: 20160915

REACTIONS (6)
  - Dizziness [Unknown]
  - Nausea [Unknown]
  - Wrong technique in product usage process [Unknown]
  - Oesophageal injury [Unknown]
  - Vomiting [Unknown]
  - Drug ineffective [Unknown]

NARRATIVE: CASE EVENT DATE: 20160915
